FAERS Safety Report 6584138-9 (Version None)
Quarter: 2010Q1

REPORT INFORMATION
  Report Type: 
  Country: None (occurrence: None)
  Receive Date: 20100216
  Receipt Date: 20100208
  Transmission Date: 20100710
  Serious: Yes (Other)
  Sender: FDA-Public Use
  Company Number: BR-JNJFOC-20100204658

PATIENT
  Sex: Female

DRUGS (2)
  1. ORTHO EVRA [Suspect]
     Indication: DRUG USE FOR UNKNOWN INDICATION
     Dosage: NORELGESTROMIN 6 MG/ETHINYL ESTRADIOL 0.6 MG
     Route: 062
  2. TRIVAGEL N [Interacting]
     Indication: APPLICATION SITE HYPERSENSITIVITY
     Route: 065

REACTIONS (8)
  - APPLICATION SITE HAEMATOMA [None]
  - APPLICATION SITE PAIN [None]
  - BLOOD PRESSURE ABNORMAL [None]
  - DEPRESSION [None]
  - DRUG INTERACTION [None]
  - HEADACHE [None]
  - NAUSEA [None]
  - PRODUCT QUALITY ISSUE [None]
